FAERS Safety Report 17818931 (Version 1)
Quarter: 2020Q2

REPORT INFORMATION
  Report Type: Spontaneous
  Country: AU (occurrence: AU)
  Receive Date: 20200522
  Receipt Date: 20200522
  Transmission Date: 20200714
  Serious: Yes (Other)
  Sender: FDA-Public Use
  Company Number: AU-BAXTER-2020BAX010623

PATIENT
  Age: 26 Year
  Sex: Male

DRUGS (19)
  1. RITUXIMAB. [Suspect]
     Active Substance: RITUXIMAB
     Dosage: CYCLE 2, R-IVAC REGIMEN, FIRST DOSE
     Route: 065
     Dates: start: 20200112
  2. ETOPOSIDE. [Suspect]
     Active Substance: ETOPOSIDE
     Indication: BURKITT^S LYMPHOMA
     Dosage: CYCLE 1 DAY 1, R-IVAC REGIMEN
     Route: 065
     Dates: start: 20191114
  3. RITUXIMAB. [Suspect]
     Active Substance: RITUXIMAB
     Indication: BURKITT^S LYMPHOMA
     Dosage: CYCLE 1 DAY 1, R-CODOX M REGIMEN
     Route: 065
     Dates: start: 20190915
  4. RITUXIMAB. [Suspect]
     Active Substance: RITUXIMAB
     Dosage: CYCLE 1 DAY 1, R-IVAC REGIMEN
     Route: 065
     Dates: start: 20191114
  5. RITUXIMAB. [Suspect]
     Active Substance: RITUXIMAB
     Dosage: CYCLE 2 DAY 1, R-CODOX M REGIMEN
     Route: 065
     Dates: start: 20191209
  6. VINCRISTINE [Suspect]
     Active Substance: VINCRISTINE
     Dosage: CYCLE 2 DAY 1, R-CODOX M REGIMEN
     Route: 065
     Dates: start: 20191209
  7. ETOPOSIDE. [Suspect]
     Active Substance: ETOPOSIDE
     Dosage: CYCLE 2, R-IVAC REGIMEN, FIRST DOSE
     Route: 065
     Dates: start: 20200112
  8. ENDOXAN CYCLOPHOSPHAMIDE 2G (AS MONOHYDRATE) POWDER FOR INJECTION VIAL [Suspect]
     Active Substance: CYCLOPHOSPHAMIDE
     Dosage: CYCLE 2 DAY 1, R-CODOX M REGIMEN
     Route: 065
     Dates: start: 20191209
  9. HOLOXAN IFOSFAMIDE 2G POWDER FOR INJECTION VIAL (OF) [Suspect]
     Active Substance: IFOSFAMIDE
     Dosage: CYCLE 2, R-IVAC REGIMEN, FIRST DOSE
     Route: 065
     Dates: start: 20200112
  10. VINCRISTINE [Suspect]
     Active Substance: VINCRISTINE
     Indication: BURKITT^S LYMPHOMA
     Dosage: CYCLE 1 DAY 1, R-CODOX M REGIMEN
     Route: 065
     Dates: start: 20190915
  11. METHOTREXATE. [Suspect]
     Active Substance: METHOTREXATE
     Indication: BURKITT^S LYMPHOMA
     Dosage: CYCLE 1 DAY 1, R-CODOX M REGIMEN
     Route: 065
     Dates: start: 20190915
  12. METHOTREXATE. [Suspect]
     Active Substance: METHOTREXATE
     Dosage: CT GUIDED
     Route: 037
     Dates: start: 20200216
  13. CYTARABINE. [Suspect]
     Active Substance: CYTARABINE
     Indication: BURKITT^S LYMPHOMA
     Dosage: CYCLE 1 DAY 1, R-IVAC REGIMEN
     Route: 065
     Dates: start: 20191114
  14. CYTARABINE. [Suspect]
     Active Substance: CYTARABINE
     Dosage: CYCLE 2, R-IVAC REGIMEN, FIRST DOSE
     Route: 065
     Dates: start: 20200112
  15. DOXIL [Suspect]
     Active Substance: DOXORUBICIN HYDROCHLORIDE
     Dosage: CYCLE 2 DAY 1, R-CODOX M REGIMEN
     Route: 065
     Dates: start: 20191209
  16. HOLOXAN IFOSFAMIDE 2G POWDER FOR INJECTION VIAL (OF) [Suspect]
     Active Substance: IFOSFAMIDE
     Indication: BURKITT^S LYMPHOMA
     Dosage: CYCLE 1 DAY 1, R-IVAC REGIMEN
     Route: 065
     Dates: start: 20191114
  17. ENDOXAN CYCLOPHOSPHAMIDE 2G (AS MONOHYDRATE) POWDER FOR INJECTION VIAL [Suspect]
     Active Substance: CYCLOPHOSPHAMIDE
     Indication: BURKITT^S LYMPHOMA
     Dosage: CYCLE 1 DAY 1, R-CODOX M REGIMEN
     Route: 065
     Dates: start: 20190915
  18. DOXIL [Suspect]
     Active Substance: DOXORUBICIN HYDROCHLORIDE
     Indication: BURKITT^S LYMPHOMA
     Dosage: CYCLE 1 DAY 1, R-CODOX M REGIMEN
     Route: 065
     Dates: start: 20190915
  19. METHOTREXATE. [Suspect]
     Active Substance: METHOTREXATE
     Dosage: CYCLE 2 DAY 1, R-CODOX M REGIMEN
     Route: 065
     Dates: start: 20191209

REACTIONS (3)
  - Staphylococcal bacteraemia [Unknown]
  - Burkitt^s lymphoma [Unknown]
  - Febrile neutropenia [Unknown]

NARRATIVE: CASE EVENT DATE: 202002
